FAERS Safety Report 18713890 (Version 1)
Quarter: 2021Q1

REPORT INFORMATION
  Report Type: Spontaneous
  Country: US (occurrence: US)
  Receive Date: 20210107
  Receipt Date: 20210107
  Transmission Date: 20210419
  Serious: Yes (Hospitalization)
  Sender: FDA-Public Use
  Company Number: US-FRESENIUS KABI-FK202100201

PATIENT
  Age: 36 Year
  Sex: Female

DRUGS (3)
  1. DOXORUBICIN [Concomitant]
     Active Substance: DOXORUBICIN
     Indication: NEUROFIBROMATOSIS
     Route: 065
  2. MESNA (MANUFACTURER UNKNOWN) [Suspect]
     Active Substance: MESNA
     Indication: PROPHYLAXIS
     Route: 065
  3. IFOSFAMIDE (MANUFACTURER UNKNOWN) [Suspect]
     Active Substance: IFOSFAMIDE
     Indication: NEUROFIBROMATOSIS
     Dosage: 5 GM/M2
     Route: 065

REACTIONS (3)
  - Fanconi syndrome [Not Recovered/Not Resolved]
  - Febrile neutropenia [Unknown]
  - Renal tubular injury [Not Recovered/Not Resolved]
